FAERS Safety Report 12337111 (Version 1)
Quarter: 2016Q2

REPORT INFORMATION
  Report Type: Report from Study
  Country: CA (occurrence: CA)
  Receive Date: 20160505
  Receipt Date: 20160505
  Transmission Date: 20160815
  Serious: Yes (Hospitalization)
  Sender: FDA-Public Use
  Company Number: CA-AMGEN-CANSL2016054839

PATIENT
  Age: 56 Year
  Sex: Female

DRUGS (2)
  1. COUMADIN [Concomitant]
     Active Substance: WARFARIN SODIUM
     Indication: PULMONARY EMBOLISM
     Dosage: UNK
  2. REPATHA [Suspect]
     Active Substance: EVOLOCUMAB
     Indication: PRODUCT USED FOR UNKNOWN INDICATION
     Dosage: 140 MG/ML, UNK
     Route: 065
     Dates: start: 20160329

REACTIONS (6)
  - Cough [Unknown]
  - Oropharyngeal pain [Unknown]
  - Dizziness [Unknown]
  - Back pain [Unknown]
  - Laboratory test abnormal [Unknown]
  - Sleep disorder due to general medical condition, insomnia type [Unknown]

NARRATIVE: CASE EVENT DATE: 2016
